FAERS Safety Report 10171905 (Version 2)
Quarter: 2014Q2

REPORT INFORMATION
  Report Type: Spontaneous
  Country: BR (occurrence: BR)
  Receive Date: 20140515
  Receipt Date: 20140519
  Transmission Date: 20141212
  Serious: Yes (Other)
  Sender: FDA-Public Use
  Company Number: BR-PFIZER INC-2014127926

PATIENT
  Sex: Male

DRUGS (2)
  1. ADVIL [Suspect]
     Indication: INFLUENZA
     Dosage: 1 TABLET, SINGLE
     Route: 048
     Dates: start: 20140429, end: 20140429
  2. ADVIL [Suspect]
     Indication: PYREXIA

REACTIONS (1)
  - Poisoning [Unknown]
